FAERS Safety Report 8876219 (Version 3)
Quarter: 2013Q2

REPORT INFORMATION
  Report Type: Report from Study
  Country: NL (occurrence: NL)
  Receive Date: 20121030
  Receipt Date: 20130612
  Transmission Date: 20140414
  Serious: Yes (Hospitalization)
  Sender: FDA-Public Use
  Company Number: NL-BAXTER-2012BAX020389

PATIENT
  Age: 62 Year
  Sex: Male

DRUGS (6)
  1. KIOVIG 100 MG/ML SOLUTION POUR PERFUSION (20 G/200 ML) [Suspect]
     Indication: MYASTHENIA GRAVIS
     Route: 042
     Dates: start: 20111023
  2. KIOVIG 100 MG/ML SOLUTION POUR PERFUSION (20 G/200 ML) [Suspect]
     Indication: OFF LABEL USE
     Route: 042
     Dates: start: 20120921
  3. KIOVIG 100 MG/ML SOLUTION POUR PERFUSION (20 G/200 ML) [Suspect]
     Route: 042
     Dates: start: 20121016
  4. KIOVIG 100 MG/ML SOLUTION POUR PERFUSION (1 G/10 ML) [Suspect]
     Indication: MYASTHENIA GRAVIS
     Route: 042
     Dates: start: 20111023
  5. KIOVIG 100 MG/ML SOLUTION POUR PERFUSION (1 G/10 ML) [Suspect]
     Indication: OFF LABEL USE
     Route: 042
     Dates: start: 20120921
  6. KIOVIG 100 MG/ML SOLUTION POUR PERFUSION (1 G/10 ML) [Suspect]
     Route: 042
     Dates: start: 20121016

REACTIONS (3)
  - Pyrexia [Not Recovered/Not Resolved]
  - Chills [Not Recovered/Not Resolved]
  - Feeling cold [Not Recovered/Not Resolved]
